FAERS Safety Report 14828548 (Version 6)
Quarter: 2019Q2

REPORT INFORMATION
  Report Type: Report from Study
  Country: DE (occurrence: DE)
  Receive Date: 20180430
  Receipt Date: 20190530
  Transmission Date: 20190711
  Serious: Yes (Other)
  Sender: FDA-Public Use
  Company Number: DE-INCYTE CORPORATION-2016IN007931

PATIENT

DRUGS (21)
  1. INCB018424 [Suspect]
     Active Substance: RUXOLITINIB
     Dosage: 10 MG, BID (10 MG/DAY/TWICE)
     Route: 048
     Dates: start: 20170817, end: 20171205
  2. TAMOXIFEN [Concomitant]
     Active Substance: TAMOXIFEN
     Indication: BREAST CANCER METASTATIC
     Dosage: UNK
     Route: 030
     Dates: end: 20160607
  3. INCB018424 [Suspect]
     Active Substance: RUXOLITINIB
     Dosage: 15 MG/DAY/TWICE
     Route: 048
     Dates: start: 20180213, end: 20180312
  4. INCB018424 [Suspect]
     Active Substance: RUXOLITINIB
     Dosage: 10 MG/DAY/TWICE
     Route: 048
     Dates: start: 20180620
  5. CAPECITABINE. [Concomitant]
     Active Substance: CAPECITABINE
     Dosage: 3000 MG, D1-21
     Route: 065
     Dates: start: 20181029, end: 20190217
  6. HALAVEN [Concomitant]
     Active Substance: ERIBULIN MESYLATE
     Indication: PRODUCT USED FOR UNKNOWN INDICATION
     Dosage: UNK
     Route: 065
     Dates: start: 20190226
  7. INCB018424 [Suspect]
     Active Substance: RUXOLITINIB
     Indication: PRIMARY MYELOFIBROSIS
     Dosage: UNK
     Route: 048
     Dates: start: 20160608
  8. FASLODEX [Concomitant]
     Active Substance: FULVESTRANT
     Indication: BREAST CANCER METASTATIC
     Dosage: 250 MG, (2 X 250 MG EVERY TWO WEEKS)
     Route: 065
     Dates: start: 20171206, end: 20180109
  9. CAPECITABINE. [Concomitant]
     Active Substance: CAPECITABINE
     Indication: BREAST CANCER METASTATIC
     Dosage: 2000 MG, UNK
     Route: 065
     Dates: start: 20180201, end: 20180927
  10. INCB018424 [Suspect]
     Active Substance: RUXOLITINIB
     Dosage: 10 MG/DAY/TWICE
     Route: 048
     Dates: start: 20180207, end: 20180212
  11. INCB018424 [Suspect]
     Active Substance: RUXOLITINIB
     Dosage: 10 MG/DAY/TWICE
     Route: 048
     Dates: start: 20180313, end: 20180325
  12. XARELTO [Concomitant]
     Active Substance: RIVAROXABAN
     Indication: DEEP VEIN THROMBOSIS
     Dosage: 20 MG, QD
     Route: 065
     Dates: start: 20160414, end: 20170111
  13. INCB018424 [Suspect]
     Active Substance: RUXOLITINIB
     Dosage: 25 MG/DAY/TWICE (1 DF OF 5 MG AND 2 DF OF 10 MG PER DAY)
     Route: 048
     Dates: start: 20160930
  14. INCB018424 [Suspect]
     Active Substance: RUXOLITINIB
     Dosage: 15 MG/DAY/TWICE
     Route: 048
     Dates: start: 20180326, end: 20180530
  15. SPIRO COMP [Concomitant]
     Active Substance: FUROSEMIDE\SPIRONOLACTONE
     Indication: LYMPHOEDEMA
     Route: 065
  16. ATACAND [Concomitant]
     Active Substance: CANDESARTAN CILEXETIL
     Indication: HYPERTENSION
     Dosage: UNK, QD
     Route: 065
     Dates: start: 20131125
  17. VIGANTOLETTEN [Concomitant]
     Active Substance: CHOLECALCIFEROL
     Indication: PRODUCT USED FOR UNKNOWN INDICATION
     Dosage: UNK UNK, QD
     Route: 065
     Dates: start: 20131125
  18. TAMOXIFEN [Concomitant]
     Active Substance: TAMOXIFEN
     Dosage: 20 MG, QD
     Route: 030
     Dates: start: 20171025, end: 20171205
  19. PACLITAXEL. [Concomitant]
     Active Substance: PACLITAXEL
     Indication: PRODUCT USED FOR UNKNOWN INDICATION
     Dosage: UNK
     Route: 065
     Dates: start: 20181004, end: 20181025
  20. INCB018424 [Suspect]
     Active Substance: RUXOLITINIB
     Dosage: 25 MG/DAY/TWICE
     Route: 048
     Dates: start: 20160919
  21. INCB018424 [Suspect]
     Active Substance: RUXOLITINIB
     Dosage: 10 MG/DAY/TWICE
     Route: 048
     Dates: start: 20170418

REACTIONS (17)
  - Chills [Recovered/Resolved]
  - Conjunctivitis [Not Recovered/Not Resolved]
  - Muscle spasms [Recovered/Resolved]
  - Conjunctival haemorrhage [Recovered/Resolved]
  - Haematoma [Recovered/Resolved]
  - Herpes zoster [Recovered/Resolved]
  - Gingival bleeding [Recovered/Resolved]
  - Nausea [Recovered/Resolved]
  - Peripheral swelling [Recovered/Resolved]
  - Conjunctival haemorrhage [Recovered/Resolved]
  - Pain in extremity [Recovered/Resolved]
  - Epistaxis [Not Recovered/Not Resolved]
  - Abdominal pain upper [Not Recovered/Not Resolved]
  - Thrombocytopenia [Not Recovered/Not Resolved]
  - Asthenia [Recovered/Resolved]
  - Asthenia [Recovered/Resolved]
  - Asthenia [Not Recovered/Not Resolved]

NARRATIVE: CASE EVENT DATE: 20161024
